FAERS Safety Report 8404084-5 (Version None)
Quarter: 2012Q2

REPORT INFORMATION
  Report Type: 
  Country: None (occurrence: None)
  Receive Date: 20120601
  Receipt Date: 20120523
  Transmission Date: 20120825
  Serious: Yes (Congenital Anomaly)
  Sender: FDA-Public Use
  Company Number: TH-ABBOTT-12P-155-0938888-00

PATIENT
  Age: 1 Day
  Sex: Female

DRUGS (6)
  1. LAMIVUDINE [Concomitant]
     Indication: MATERNAL EXPOSURE TIMING UNSPECIFIED
     Route: 064
  2. KALETRA [Suspect]
     Indication: MATERNAL EXPOSURE TIMING UNSPECIFIED
     Route: 064
  3. RITONAVIR [Suspect]
     Indication: MATERNAL EXPOSURE TIMING UNSPECIFIED
     Route: 064
  4. DIDANOSINE [Concomitant]
     Indication: MATERNAL EXPOSURE TIMING UNSPECIFIED
     Route: 064
  5. ZIDOVUDINE [Concomitant]
     Indication: MATERNAL EXPOSURE TIMING UNSPECIFIED
     Route: 064
  6. INDINIVIR SULFATE [Concomitant]
     Indication: MATERNAL EXPOSURE TIMING UNSPECIFIED
     Route: 064

REACTIONS (3)
  - FOETAL EXPOSURE DURING PREGNANCY [None]
  - POLYDACTYLY [None]
  - CLEFT LIP [None]
